APPROVED DRUG PRODUCT: CLORAZEPATE DIPOTASSIUM
Active Ingredient: CLORAZEPATE DIPOTASSIUM
Strength: 7.5MG
Dosage Form/Route: TABLET;ORAL
Application: A071858 | Product #003 | TE Code: AB
Applicant: AUROBINDO PHARMA LTD
Approved: Jul 17, 1987 | RLD: No | RS: No | Type: RX